FAERS Safety Report 6543736-9 (Version None)
Quarter: 2010Q1

REPORT INFORMATION
  Report Type: 
  Country: None (occurrence: None)
  Receive Date: 20100120
  Receipt Date: 20100111
  Transmission Date: 20100710
  Serious: Yes (Hospitalization)
  Sender: FDA-Public Use
  Company Number: GB-ASTRAZENECA-2009SE26441

PATIENT
  Age: 83 Year
  Sex: Female

DRUGS (9)
  1. SEROQUEL [Suspect]
     Indication: DEMENTIA
     Route: 048
     Dates: start: 20090101, end: 20091101
  2. SEROQUEL [Suspect]
     Indication: AGITATION
     Route: 048
     Dates: start: 20090101, end: 20091101
  3. SEROQUEL [Suspect]
     Indication: ANXIETY
     Route: 048
     Dates: start: 20090101, end: 20091101
  4. PHENYTOIN [Concomitant]
  5. GAVISCON [Concomitant]
  6. SENNA [Concomitant]
  7. OMEPRAZOLE [Concomitant]
  8. CALCICHEW [Concomitant]
  9. ALENDRONE ACID [Concomitant]

REACTIONS (7)
  - ABDOMINAL PAIN [None]
  - DEPRESSED MOOD [None]
  - FALL [None]
  - HALLUCINATION [None]
  - HYPOTENSION [None]
  - OFF LABEL USE [None]
  - URINARY TRACT INFECTION [None]
